FAERS Safety Report 26143009 (Version 1)
Quarter: 2025Q4

REPORT INFORMATION
  Report Type: Report from Study
  Country: CA (occurrence: CA)
  Receive Date: 20251211
  Receipt Date: 20251211
  Transmission Date: 20260118
  Serious: Yes (Other)
  Sender: ROCHE
  Company Number: CA-ROCHE-10000453544

PATIENT
  Sex: Male

DRUGS (18)
  1. RITUXAN [Suspect]
     Active Substance: RITUXIMAB
     Indication: Granulomatosis with polyangiitis
     Dosage: DAY 1/15
     Route: 042
     Dates: start: 20190925, end: 20201019
  2. RITUXAN [Suspect]
     Active Substance: RITUXIMAB
     Dosage: DAY 1, DAY 15
     Route: 042
     Dates: start: 20210406, end: 20210420
  3. RITUXAN [Suspect]
     Active Substance: RITUXIMAB
     Dosage: SINGLE INFUSIONS
     Route: 042
  4. ASPIRIN [Concomitant]
     Active Substance: ASPIRIN
  5. ARANESP [Concomitant]
     Active Substance: DARBEPOETIN ALFA
     Dosage: DRUG DOSE FIRST ADMINISTERED IS 30 MG MICROGRAM(S)?30 MCG/0.3ML
     Route: 058
  6. BENADRYL [Concomitant]
     Active Substance: DIPHENHYDRAMINE HYDROCHLORIDE
     Indication: Premedication
     Route: 048
  7. CALCIUM [Concomitant]
     Active Substance: CALCIUM
  8. CHOLECALCIFEROL [Concomitant]
     Active Substance: CHOLECALCIFEROL
     Dosage: DRUG DOSE FIRST ADMINISTERED IS 10000 IU INTERNATIONAL UNIT(S)
  9. FUROSEMIDE [Concomitant]
     Active Substance: FUROSEMIDE
  10. KETOCONAZOLE [Concomitant]
     Active Substance: KETOCONAZOLE
  11. LORAZEPAM [Concomitant]
     Active Substance: LORAZEPAM
  12. NABILONE [Concomitant]
     Active Substance: NABILONE
  13. Rabeprazole Enteric Coated [Concomitant]
  14. SOLU-MEDROL [Concomitant]
     Active Substance: METHYLPREDNISOLONE SODIUM SUCCINATE
     Indication: Premedication
     Route: 042
  15. Sulfatrim (Sulfamethoxazole-trimethoprim) [Concomitant]
     Dosage: DRUG DOSE FIRST ADMINISTERED IS 80-400 MG MILLIGRAM(S)
  16. TAMSULOSIN [Concomitant]
     Active Substance: TAMSULOSIN
  17. TRAZODONE [Concomitant]
     Active Substance: TRAZODONE HYDROCHLORIDE
     Dosage: DRUG DOSE FIRST ADMINISTERED IS 25 MG MILLIGRAM(S)
  18. TYLENOL [Concomitant]
     Active Substance: ACETAMINOPHEN
     Indication: Premedication
     Route: 048

REACTIONS (2)
  - Epistaxis [Unknown]
  - Immunosuppression [Unknown]
